FAERS Safety Report 4377455-4 (Version None)
Quarter: 2004Q2

REPORT INFORMATION
  Report Type: 
  Country: None (occurrence: None)
  Receive Date: 20040615
  Receipt Date: 20040527
  Transmission Date: 20050107
  Serious: Yes (Hospitalization)
  Sender: FDA-Public Use
  Company Number: PHEH2004US05929

PATIENT
  Age: 54 Year
  Sex: Female

DRUGS (16)
  1. ZELNORM [Suspect]
     Dosage: 6 MG, QD
     Route: 048
     Dates: start: 20040402, end: 20040502
  2. COLACE [Concomitant]
     Indication: CONSTIPATION
  3. SENOKOT [Concomitant]
     Indication: CONSTIPATION
  4. LIPITOR [Concomitant]
  5. ASPIRIN [Concomitant]
  6. WELLBUTRIN [Concomitant]
  7. DEXTROSTAT [Concomitant]
  8. KLONOPIN [Concomitant]
  9. DARVOCET-N 100 [Concomitant]
  10. MULTI-VITAMINS [Concomitant]
  11. PROTONIX [Concomitant]
  12. ZESTRIL [Concomitant]
  13. CARDIZEM [Concomitant]
  14. FUROSEMIDE [Concomitant]
  15. ZANTAC [Concomitant]
  16. TUMS [Concomitant]

REACTIONS (12)
  - ABDOMINAL PAIN [None]
  - ABDOMINAL TENDERNESS [None]
  - ALANINE AMINOTRANSFERASE INCREASED [None]
  - BIOPSY COLON ABNORMAL [None]
  - BLOOD UREA INCREASED [None]
  - COLITIS ISCHAEMIC [None]
  - COLITIS ULCERATIVE [None]
  - COLONOSCOPY ABNORMAL [None]
  - COMPUTERISED TOMOGRAM ABNORMAL [None]
  - DIARRHOEA [None]
  - DIARRHOEA HAEMORRHAGIC [None]
  - WHITE BLOOD CELL COUNT INCREASED [None]
